FAERS Safety Report 11884658 (Version 1)
Quarter: 2016Q1

REPORT INFORMATION
  Report Type: Spontaneous
  Country: FR (occurrence: FR)
  Receive Date: 20160104
  Receipt Date: 20160104
  Transmission Date: 20160526
  Serious: Yes (Hospitalization, Congenital Anomaly, Other)
  Sender: FDA-Public Use
  Company Number: FR-BRISTOL-MYERS SQUIBB COMPANY-10033603

PATIENT
  Sex: Female
  Weight: 3.41 kg

DRUGS (10)
  1. ZERIT [Suspect]
     Active Substance: STAVUDINE
     Indication: PRODUCT USED FOR UNKNOWN INDICATION
     Dosage: 3.4 ML, BID
     Route: 048
  2. VIRAMUNE [Suspect]
     Active Substance: NEVIRAPINE
     Indication: PRODUCT USED FOR UNKNOWN INDICATION
     Dosage: EXPOSURE BEGAN IN WEEK 31 OF GESTATION.
     Route: 064
     Dates: start: 19980914, end: 19981105
  3. VIDEX [Suspect]
     Active Substance: DIDANOSINE
     Indication: PRODUCT USED FOR UNKNOWN INDICATION
     Dosage: 5.5 ML, QD
     Route: 048
  4. RETROVIR [Suspect]
     Active Substance: ZIDOVUDINE
     Indication: PRODUCT USED FOR UNKNOWN INDICATION
     Dosage: EXPOSURE BEGAN IN WEEK 18 AND ENDED IN WEEK 31 OF GESTATION
     Route: 064
     Dates: start: 19980618, end: 19981105
  5. ZERIT [Suspect]
     Active Substance: STAVUDINE
     Indication: PRODUCT USED FOR UNKNOWN INDICATION
     Dosage: UNK
     Route: 064
     Dates: end: 19981105
  6. VIRACEPT [Suspect]
     Active Substance: NELFINAVIR MESYLATE
     Indication: PRODUCT USED FOR UNKNOWN INDICATION
     Dosage: EXPOSURE BEGAN IN WEEK 31 OF GESTATION.
     Route: 064
     Dates: start: 19980914, end: 19981105
  7. CRIXIVAN [Suspect]
     Active Substance: INDINAVIR SULFATE
     Indication: PRODUCT USED FOR UNKNOWN INDICATION
     Dosage: UNK
     Route: 064
     Dates: end: 199809
  8. VIRAMUNE [Suspect]
     Active Substance: NEVIRAPINE
     Indication: PRODUCT USED FOR UNKNOWN INDICATION
     Dosage: .7 ML, UNK
     Route: 048
  9. VIDEX [Suspect]
     Active Substance: DIDANOSINE
     Indication: PRODUCT USED FOR UNKNOWN INDICATION
     Dosage: UNK
     Route: 064
     Dates: start: 19980618, end: 19981105
  10. EPIVIR [Suspect]
     Active Substance: LAMIVUDINE
     Indication: PRODUCT USED FOR UNKNOWN INDICATION
     Dosage: ONGOING AT CONCEPTION AND ENDED IN WEEK 18 OF GESTATION.
     Route: 064
     Dates: end: 19980618

REACTIONS (13)
  - Cardiac murmur [Recovered/Resolved]
  - Foetal exposure during pregnancy [Unknown]
  - Granulocytopenia [Recovered/Resolved]
  - Conjunctivitis [Recovered/Resolved]
  - Tachypnoea [Recovered/Resolved]
  - Eyelid retraction [Recovered/Resolved]
  - Bilirubin conjugated increased [Recovered/Resolved]
  - Eustachian tube dysfunction [Unknown]
  - Blood lactic acid increased [Recovered/Resolved]
  - Candida infection [Recovered/Resolved]
  - Hypertriglyceridaemia [Recovered/Resolved]
  - Pulmonary valve stenosis [Recovered/Resolved]
  - Hypertonia [Recovered/Resolved]
